FAERS Safety Report 5667003-0 (Version None)
Quarter: 2008Q1

REPORT INFORMATION
  Report Type: 
  Country: None (occurrence: None)
  Receive Date: 20080315
  Receipt Date: 20080109
  Transmission Date: 20080703
  Serious: No
  Sender: FDA-Public Use
  Company Number: US-ABBOTT-08P-163-0432927-00

PATIENT
  Sex: Male

DRUGS (3)
  1. HUMIRA [Suspect]
     Indication: CROHN'S DISEASE
     Route: 058
     Dates: start: 20080103, end: 20080103
  2. HUMIRA [Suspect]
  3. EPIPEN [Concomitant]
     Indication: ANAPHYLACTIC SHOCK

REACTIONS (1)
  - FISTULA [None]
